FAERS Safety Report 17431643 (Version 3)
Quarter: 2020Q2

REPORT INFORMATION
  Report Type: Spontaneous
  Country: IT (occurrence: IT)
  Receive Date: 20200218
  Receipt Date: 20200506
  Transmission Date: 20200713
  Serious: Yes (Other)
  Sender: FDA-Public Use
  Company Number: IT-PFIZER INC-2020070858

PATIENT
  Age: 81 Year
  Sex: Male
  Weight: 73 kg

DRUGS (9)
  1. FUROSEMIDE FISIOPHARMA [Suspect]
     Active Substance: FUROSEMIDE
     Dosage: UNK (20 MG/2ML)
     Route: 065
  2. TRIATEC (RAMIPRIL) [Suspect]
     Active Substance: RAMIPRIL
     Dosage: UNK
     Route: 065
  3. IPERTEN [Suspect]
     Active Substance: MANIDIPINE
     Dosage: UNK
     Route: 065
  4. TORVAST [Suspect]
     Active Substance: ATORVASTATIN
     Dosage: UNK
     Route: 065
  5. COLCHICINA LIRCA [Suspect]
     Active Substance: COLCHICINE
     Dosage: UNK
     Route: 065
  6. ZYLORIC [Suspect]
     Active Substance: ALLOPURINOL
     Dosage: UNK
     Route: 065
  7. CARDICOR [Suspect]
     Active Substance: BISOPROLOL
     Dosage: UNK
     Route: 065
  8. HEPARIN SODIUM. [Suspect]
     Active Substance: HEPARIN SODIUM
     Indication: ATRIAL FIBRILLATION
     Dosage: 7.5 MG, QD
     Route: 059
     Dates: start: 20190101, end: 20190814
  9. KANRENOL [Suspect]
     Active Substance: CANRENOATE POTASSIUM
     Dosage: UNK
     Route: 065

REACTIONS (1)
  - Pericardial effusion [Recovering/Resolving]

NARRATIVE: CASE EVENT DATE: 20190517
